FAERS Safety Report 16070113 (Version 1)
Quarter: 2019Q1

REPORT INFORMATION
  Report Type: Spontaneous
  Country: US (occurrence: US)
  Receive Date: 20190314
  Receipt Date: 20190314
  Transmission Date: 20190418
  Serious: No
  Sender: FDA-Public Use
  Company Number: US-PHARMING-PHAUS2019000168

PATIENT

DRUGS (25)
  1. PROBENECID. [Concomitant]
     Active Substance: PROBENECID
  2. CLARITIN [Concomitant]
     Active Substance: LORATADINE
  3. EPINEPHRINE. [Concomitant]
     Active Substance: EPINEPHRINE
  4. FERRLECIT [Concomitant]
     Active Substance: SODIUM FERRIC GLUCONATE COMPLEX
  5. MIRALAX [Concomitant]
     Active Substance: POLYETHYLENE GLYCOL 3350
  6. BENADRYL [Concomitant]
     Active Substance: DIPHENHYDRAMINE HYDROCHLORIDE
  7. XYZAL [Concomitant]
     Active Substance: LEVOCETIRIZINE DIHYDROCHLORIDE
  8. KETOTIFEN [Concomitant]
     Active Substance: KETOTIFEN
  9. CHOLESTYRAMINE. [Concomitant]
     Active Substance: CHOLESTYRAMINE
  10. PROMETHAZINE [Concomitant]
     Active Substance: PROMETHAZINE\PROMETHAZINE HYDROCHLORIDE
  11. RUCONEST [Suspect]
     Active Substance: HUMAN C1-ESTERASE INHIBITOR
     Indication: HEREDITARY ANGIOEDEMA
     Dosage: 3200 IU, AS NEEDED
     Dates: start: 20190125
  12. TAKHZYRO [Concomitant]
     Active Substance: LANADELUMAB-FLYO
  13. HEPARIN [Concomitant]
     Active Substance: HEPARIN SODIUM
  14. PRILOSEC [Concomitant]
     Active Substance: OMEPRAZOLE MAGNESIUM
  15. SODIUM CHLORIDE. [Concomitant]
     Active Substance: SODIUM CHLORIDE
  16. ZOFRAIN [Concomitant]
  17. FLUDROCORTISONE [Concomitant]
     Active Substance: FLUDROCORTISONE
  18. CROMONLYN [Concomitant]
  19. SINGULAIR [Concomitant]
     Active Substance: MONTELUKAST SODIUM
  20. ONDANSETRONE [Concomitant]
     Active Substance: ONDANSETRON
  21. STERILE WATER [Concomitant]
     Active Substance: WATER
  22. OXYCODONE [Concomitant]
     Active Substance: OXYCODONE
  23. CRYSELLE [Concomitant]
     Active Substance: ETHINYL ESTRADIOL\NORGESTREL
  24. MAGNESIUM [Concomitant]
     Active Substance: MAGNESIUM
  25. VITAMIN D2 [Concomitant]
     Active Substance: ERGOCALCIFEROL

REACTIONS (1)
  - Abdominal discomfort [Unknown]
